FAERS Safety Report 13296212 (Version 1)
Quarter: 2017Q1

REPORT INFORMATION
  Report Type: Spontaneous
  Country: US (occurrence: US)
  Receive Date: 20170304
  Receipt Date: 20170304
  Transmission Date: 20170428
  Serious: No
  Sender: FDA-Public Use
  Company Number: US-BRISTOL-MYERS SQUIBB COMPANY-BMS-2017-017356

PATIENT
  Sex: Female

DRUGS (1)
  1. OPDIVO [Suspect]
     Active Substance: NIVOLUMAB
     Indication: SMALL CELL LUNG CANCER
     Dosage: 1 DF, Q2WK
     Route: 042

REACTIONS (4)
  - Musculoskeletal pain [Unknown]
  - Pain in extremity [Unknown]
  - Product use issue [Unknown]
  - Stomatitis [Unknown]
